FAERS Safety Report 4819107-X (Version None)
Quarter: 2005Q4

REPORT INFORMATION
  Report Type: 
  Country: None (occurrence: None)
  Receive Date: 20051101
  Receipt Date: 20051019
  Transmission Date: 20060501
  Serious: Yes (Hospitalization, Other)
  Sender: FDA-Public Use
  Company Number: 213838

PATIENT
  Age: 44 Year
  Sex: Female

DRUGS (1)
  1. RAPTIVA [Suspect]
     Indication: PSORIASIS
     Dosage: 1 MG/KG, 1/WEEK, SUBCUTANEOUS
     Route: 058
     Dates: start: 20041019, end: 20050329

REACTIONS (3)
  - BIOPSY LIVER ABNORMAL [None]
  - GRANULOMATOUS LIVER DISEASE [None]
  - LIVER ABSCESS [None]
